FAERS Safety Report 13632157 (Version 1)
Quarter: 2017Q2

REPORT INFORMATION
  Report Type: Spontaneous
  Country: US (occurrence: US)
  Receive Date: 20170531
  Receipt Date: 20170531
  Transmission Date: 20170830
  Serious: No
  Sender: FDA-Public Use
  Company Number: US-ASTELLAS-1443984

PATIENT
  Sex: Female

DRUGS (7)
  1. VITAMIN B12 [Concomitant]
     Active Substance: CYANOCOBALAMIN
  2. PRAVASTATIN SODIUM. [Concomitant]
     Active Substance: PRAVASTATIN SODIUM
  3. FOLIC ACID. [Concomitant]
     Active Substance: FOLIC ACID
  4. ALIMTA [Concomitant]
     Active Substance: PEMETREXED DISODIUM
  5. PROCHLORPERAZINE MALEATE. [Concomitant]
     Active Substance: PROCHLORPERAZINE MALEATE
  6. FISH OIL [Concomitant]
     Active Substance: FISH OIL
  7. TARCEVA [Suspect]
     Active Substance: ERLOTINIB HYDROCHLORIDE
     Indication: BRONCHIAL CARCINOMA
     Route: 048
     Dates: start: 20140715

REACTIONS (5)
  - Nausea [Unknown]
  - Dyspepsia [Unknown]
  - Dysphagia [Unknown]
  - Abdominal pain [Unknown]
  - Abdominal discomfort [Unknown]
